FAERS Safety Report 13482131 (Version 1)
Quarter: 2017Q2

REPORT INFORMATION
  Report Type: Spontaneous
  Country: DE (occurrence: DE)
  Receive Date: 20170426
  Receipt Date: 20170426
  Transmission Date: 20170830
  Serious: Yes (Other)
  Sender: FDA-Public Use
  Company Number: GXKR2017DE002375

PATIENT

DRUGS (1)
  1. CIPRO 1A PHARMA [Suspect]
     Active Substance: CIPROFLOXACIN\CIPROFLOXACIN HYDROCHLORIDE
     Indication: SINUSITIS
     Dosage: 500 MG, BID
     Route: 048
     Dates: start: 20160315

REACTIONS (16)
  - Impaired work ability [Unknown]
  - Bone pain [Unknown]
  - Burning sensation [Unknown]
  - Cyanosis [Unknown]
  - Tinnitus [Recovered/Resolved]
  - Tendon pain [Unknown]
  - Dyspepsia [Unknown]
  - Sudden hearing loss [Recovered/Resolved]
  - Gait disturbance [Unknown]
  - Back pain [Unknown]
  - Tendon discomfort [Unknown]
  - Abdominal discomfort [Unknown]
  - Arthralgia [Unknown]
  - Food intolerance [Unknown]
  - Joint swelling [Unknown]
  - Paraesthesia [Unknown]

NARRATIVE: CASE EVENT DATE: 201603
